FAERS Safety Report 18217644 (Version 1)
Quarter: 2020Q3

REPORT INFORMATION
  Report Type: Spontaneous
  Country: US (occurrence: US)
  Receive Date: 20200901
  Receipt Date: 20200901
  Transmission Date: 20201103
  Serious: Yes (Hospitalization)
  Sender: FDA-Public Use
  Company Number: None

PATIENT
  Age: 62 Year
  Sex: Male
  Weight: 63.7 kg

DRUGS (2)
  1. CISPLATIN 14MG [Suspect]
     Active Substance: CISPLATIN
     Dates: start: 20200421, end: 20200526
  2. 5?FLUOROURACIL 7000 MG(FLUOROURACIL) [Suspect]
     Active Substance: FLUOROURACIL

REACTIONS (5)
  - Haemorrhage [None]
  - Subarachnoid haemorrhage [None]
  - Subdural haematoma [None]
  - Fall [None]
  - Contusion [None]

NARRATIVE: CASE EVENT DATE: 20200803
